FAERS Safety Report 13908798 (Version 1)
Quarter: 2017Q3

REPORT INFORMATION
  Report Type: Spontaneous
  Country: BR (occurrence: BR)
  Receive Date: 20170827
  Receipt Date: 20170827
  Transmission Date: 20171127
  Serious: Yes (Life-Threatening, Other)
  Sender: FDA-Public Use
  Company Number: PHHY2017BR125257

PATIENT
  Sex: Male
  Weight: 110 kg

DRUGS (8)
  1. TEGRETOL [Suspect]
     Active Substance: CARBAMAZEPINE
     Indication: PETIT MAL EPILEPSY
  2. TEGRETOL [Suspect]
     Active Substance: CARBAMAZEPINE
     Indication: HIPPOCAMPAL SCLEROSIS
     Dosage: 2 DF, QD
     Route: 048
  3. TEGRETOL [Suspect]
     Active Substance: CARBAMAZEPINE
     Indication: HIPPOCAMPAL SCLEROSIS
     Dosage: 2 DF, QD
     Route: 048
  4. TEGRETOL [Suspect]
     Active Substance: CARBAMAZEPINE
     Indication: PETIT MAL EPILEPSY
  5. CARBAMAZEPINE. [Suspect]
     Active Substance: CARBAMAZEPINE
     Indication: PETIT MAL EPILEPSY
  6. CARBAMAZEPINE. [Suspect]
     Active Substance: CARBAMAZEPINE
     Indication: HIPPOCAMPAL SCLEROSIS
     Dosage: UNK
     Route: 048
  7. DEPAKIN [Concomitant]
     Active Substance: VALPROATE SODIUM
     Indication: HIPPOCAMPAL SCLEROSIS
     Dosage: 2 DF, QD
     Route: 048
  8. DEPAKIN [Concomitant]
     Active Substance: VALPROATE SODIUM
     Indication: PETIT MAL EPILEPSY

REACTIONS (8)
  - Apallic syndrome [Unknown]
  - Feeling abnormal [Unknown]
  - Weight increased [Unknown]
  - Loss of consciousness [Unknown]
  - Memory impairment [Unknown]
  - Epinephrine increased [Unknown]
  - Malaise [Unknown]
  - Petit mal epilepsy [Unknown]
